FAERS Safety Report 16508097 (Version 3)
Quarter: 2019Q4

REPORT INFORMATION
  Report Type: Report from Study
  Country: JP (occurrence: JP)
  Receive Date: 20190702
  Receipt Date: 20191105
  Transmission Date: 20200122
  Serious: Yes (Hospitalization)
  Sender: FDA-Public Use
  Company Number: JP-BEH-2019103549

PATIENT
  Age: 71 Year
  Sex: Male
  Weight: 48.9 kg

DRUGS (13)
  1. WARFARIN POTASSIUM [Concomitant]
     Active Substance: WARFARIN POTASSIUM
     Dosage: 4 MILLIGRAM
     Route: 048
     Dates: start: 20180625, end: 20180626
  2. METOCLOPRAMIDE HYDROCHLORIDE. [Concomitant]
     Active Substance: METOCLOPRAMIDE HYDROCHLORIDE
     Indication: NAUSEA
     Dosage: UNK
     Route: 065
     Dates: start: 20180614, end: 20190618
  3. NICARDIPINE HYDROCHLORIDE. [Concomitant]
     Active Substance: NICARDIPINE HYDROCHLORIDE
     Dosage: UNK
     Route: 065
     Dates: start: 20180615, end: 20180618
  4. WARFARIN POTASSIUM [Concomitant]
     Active Substance: WARFARIN POTASSIUM
     Dosage: 3 MILLIGRAM
     Route: 048
     Dates: start: 20180623, end: 20180624
  5. WARFARIN POTASSIUM [Concomitant]
     Active Substance: WARFARIN POTASSIUM
     Dosage: 5 MILLIGRAM
     Route: 048
     Dates: start: 20180627, end: 20180807
  6. WARFARIN POTASSIUM [Concomitant]
     Active Substance: WARFARIN POTASSIUM
     Dosage: 4.5 MILLIGRAM
     Route: 048
     Dates: start: 20180808
  7. PITAVASTATIN CALCIUM [Concomitant]
     Active Substance: PITAVASTATIN CALCIUM
     Indication: HYPERLIPIDAEMIA
     Dosage: UNK
     Route: 048
     Dates: start: 20180112
  8. KAYTWO N [Concomitant]
     Active Substance: MENATETRENONE
     Indication: ANTICOAGULANT THERAPY
     Dosage: 10 MG/2 ML, 1 AMPULE
     Dates: start: 20180615, end: 20180615
  9. BERIPLEX P/N [Suspect]
     Active Substance: COAGULATION FACTOR IX HUMAN\COAGULATION FACTOR VII HUMAN\COAGULATION FACTOR X HUMAN\PROTEIN C\PROTEIN S HUMAN\PROTHROMBIN
     Indication: HAEMORRHAGE
     Dosage: 2600 INTERNATIONAL UNIT
     Route: 042
     Dates: start: 20180615
  10. PENTAZOCINE [Concomitant]
     Active Substance: PENTAZOCINE
     Indication: PAIN
     Dosage: UNK
     Dates: start: 20180615, end: 20180615
  11. BERIPLEX P/N [Suspect]
     Active Substance: COAGULATION FACTOR IX HUMAN\COAGULATION FACTOR VII HUMAN\COAGULATION FACTOR X HUMAN\PROTEIN C\PROTEIN S HUMAN\PROTHROMBIN
     Indication: HAEMORRHAGE
     Dosage: 2600 INTERNATIONAL UNIT
     Route: 042
     Dates: start: 20180615
  12. HEPARIN SODIUM. [Concomitant]
     Active Substance: HEPARIN SODIUM
     Indication: CARDIAC VALVE DISEASE
     Dosage: UNK
     Route: 065
     Dates: start: 20180616, end: 20180629
  13. WARFARIN POTASSIUM [Concomitant]
     Active Substance: WARFARIN POTASSIUM
     Dosage: 4 MILLIGRAM
     Route: 048
     Dates: end: 20180615

REACTIONS (1)
  - Endocarditis [Recovering/Resolving]

NARRATIVE: CASE EVENT DATE: 20180616
